FAERS Safety Report 9053684 (Version 17)
Quarter: 2019Q1

REPORT INFORMATION
  Report Type: Report from Study
  Country: CA (occurrence: CA)
  Receive Date: 20130208
  Receipt Date: 20190307
  Transmission Date: 20190418
  Serious: Yes (Other)
  Sender: FDA-Public Use
  Company Number: PHHY2013CA012245

PATIENT
  Age: 38 Year
  Sex: Male

DRUGS (7)
  1. HYDROXYUREA. [Suspect]
     Active Substance: HYDROXYUREA
     Indication: PRODUCT USED FOR UNKNOWN INDICATION
     Route: 065
  2. PHOSPHATES [Concomitant]
     Indication: PRODUCT USED FOR UNKNOWN INDICATION
     Route: 065
  3. REACTINE [CETIRIZINE HYDROCHLORIDE] [Suspect]
     Active Substance: CETIRIZINE HYDROCHLORIDE
     Indication: PRODUCT USED FOR UNKNOWN INDICATION
     Dosage: UNK
     Route: 065
  4. EPIPEN [Concomitant]
     Active Substance: EPINEPHRINE
     Indication: PRODUCT USED FOR UNKNOWN INDICATION
     Dosage: PRN
     Route: 065
  5. TASIGNA [Suspect]
     Active Substance: NILOTINIB
     Indication: CHRONIC MYELOID LEUKAEMIA
     Dosage: 300 MG, BID
     Route: 048
     Dates: start: 20121226
  6. TASIGNA [Suspect]
     Active Substance: NILOTINIB
     Dosage: 500 MG, QD (200 MG IN MORNING AND 300 MG EVENING)
     Route: 048
  7. VENTOLIN [Concomitant]
     Active Substance: ALBUTEROL SULFATE
     Indication: PRODUCT USED FOR UNKNOWN INDICATION
     Dosage: PRN
     Route: 065

REACTIONS (21)
  - Arthralgia [Not Recovered/Not Resolved]
  - Electrocardiogram QT prolonged [Recovering/Resolving]
  - Haemoglobin decreased [Unknown]
  - Nasopharyngitis [Unknown]
  - Lipase increased [Recovering/Resolving]
  - Muscle strain [Unknown]
  - Groin pain [Not Recovered/Not Resolved]
  - Acne [Recovering/Resolving]
  - Pain [Not Recovered/Not Resolved]
  - Cytogenetic analysis abnormal [Unknown]
  - Headache [Unknown]
  - Hepatic enzyme increased [Unknown]
  - Blood sodium decreased [Unknown]
  - Dry skin [Unknown]
  - Gastric disorder [Recovered/Resolved]
  - White blood cell count decreased [Recovered/Resolved]
  - Pyrexia [Unknown]
  - Blood phosphorus decreased [Recovered/Resolved]
  - Fatigue [Unknown]
  - Blood phosphorus decreased [Unknown]
  - Pain in extremity [Not Recovered/Not Resolved]

NARRATIVE: CASE EVENT DATE: 201301
